FAERS Safety Report 9544024 (Version 2)
Quarter: 2014Q1

REPORT INFORMATION
  Report Type: Spontaneous
  Country: US (occurrence: None)
  Receive Date: 20130524
  Receipt Date: 20130724
  Transmission Date: 20141002
  Serious: Yes (Other)
  Sender: FDA-Public Use
  Company Number: PHEH2013US000964

PATIENT
  Age: 56 Year
  Sex: Male

DRUGS (1)
  1. GILENYA [Suspect]
     Indication: MULTIPLE SCLEROSIS
     Dosage: 5/01/2012 TO ONGOING
     Route: 048
     Dates: start: 20120501

REACTIONS (5)
  - Sinusitis [None]
  - Bronchitis [None]
  - Hepatic enzyme increased [None]
  - Lymphocyte count decreased [None]
  - Malaise [None]
